FAERS Safety Report 10607357 (Version 1)
Quarter: 2014Q4

REPORT INFORMATION
  Report Type: Spontaneous
  Country: SE (occurrence: SE)
  Receive Date: 20141125
  Receipt Date: 20141125
  Transmission Date: 20150529
  Serious: Yes (Hospitalization)
  Sender: FDA-Public Use
  Company Number: SE-009507513-1411SWE011001

PATIENT
  Age: 84 Year
  Sex: Female

DRUGS (1)
  1. MIRTAZAPIN IMI PHARMA [Suspect]
     Active Substance: MIRTAZAPINE
     Route: 048

REACTIONS (4)
  - Disorientation [Unknown]
  - Fatigue [Unknown]
  - Headache [Unknown]
  - Hyponatraemia [Unknown]
